FAERS Safety Report 6690285-3 (Version None)
Quarter: 2010Q2

REPORT INFORMATION
  Report Type: 
  Country: None (occurrence: None)
  Receive Date: 20100421
  Receipt Date: 20100414
  Transmission Date: 20101027
  Serious: Yes (Hospitalization)
  Sender: FDA-Public Use
  Company Number: FR-ASTRAZENECA-2010SE16974

PATIENT
  Age: 30 Year
  Sex: Female

DRUGS (3)
  1. XYLOCAINE [Suspect]
     Indication: ANALGESIC THERAPY
     Route: 042
     Dates: start: 20100113
  2. ASPEGIC 1000 [Concomitant]
     Route: 048
  3. LOVENOX [Concomitant]

REACTIONS (1)
  - SOMNOLENCE [None]
